FAERS Safety Report 8620580 (Version 2)
Quarter: 2013Q2

REPORT INFORMATION
  Report Type: Spontaneous
  Country: US (occurrence: US)
  Receive Date: 20120618
  Receipt Date: 20130521
  Transmission Date: 20140414
  Serious: Yes (Other)
  Sender: FDA-Public Use
  Company Number: US-TEVA-318253USA

PATIENT
  Age: 59 Year
  Sex: Female
  Weight: 61.29 kg

DRUGS (7)
  1. ACTIQ [Suspect]
     Indication: FIBROMYALGIA
     Dosage: 8000 MICROGRAM DAILY; 180 LOZENGES EVERY 10 DAYS
     Route: 002
  2. FENTANYL [Concomitant]
     Indication: PAIN
     Dosage: 100 MICROGRAM DAILY;
     Route: 062
  3. CORTICOSTEROIDS [Concomitant]
     Route: 008
     Dates: start: 201110
  4. DICLOFENAC [Concomitant]
     Dosage: DAILY
     Route: 061
  5. HYDROCHLOROTHIAZIDE [Concomitant]
     Indication: HYPERTENSION
     Dosage: DAILY
     Route: 048
     Dates: start: 20111019
  6. METAXALONE [Concomitant]
     Indication: MUSCLE SPASMS
     Dosage: 3200 MILLIGRAM DAILY; 3-4 TIMES A DAY PRN
     Route: 048
     Dates: start: 20100527
  7. OXYCODONE [Concomitant]

REACTIONS (4)
  - Dental caries [Recovered/Resolved]
  - Tooth disorder [Recovered/Resolved with Sequelae]
  - Drug prescribing error [Unknown]
  - Off label use [Unknown]
